FAERS Safety Report 8470179-3 (Version None)
Quarter: 2012Q2

REPORT INFORMATION
  Report Type: 
  Country: None (occurrence: None)
  Receive Date: 20120621
  Receipt Date: 20120621
  Transmission Date: 20120825
  Serious: Yes (Hospitalization, Other)
  Sender: FDA-Public Use
  Company Number: None

PATIENT
  Age: 15 Year
  Sex: Male
  Weight: 62 kg

DRUGS (9)
  1. KEPPRA [Suspect]
     Indication: EPILEPSY
     Dosage: 500MG BID PO
     Route: 048
     Dates: start: 20120507, end: 20120511
  2. LORAZEPAM [Concomitant]
  3. TRILEPTAL [Concomitant]
  4. CLINDAMYCIN [Concomitant]
  5. VANCOMYCIN [Concomitant]
  6. CEFDINIR [Concomitant]
  7. ANTIBIOTICS [Concomitant]
  8. ACYCLOVIR-FUROSEMIDE [Concomitant]
  9. CEFOTAXIME [Concomitant]

REACTIONS (1)
  - BLOOD CREATINE PHOSPHOKINASE INCREASED [None]
